FAERS Safety Report 7961989-7 (Version None)
Quarter: 2011Q4

REPORT INFORMATION
  Report Type: 
  Country: None (occurrence: None)
  Receive Date: 20111207
  Receipt Date: 20111130
  Transmission Date: 20120403
  Serious: Yes (Death, Hospitalization, Other)
  Sender: FDA-Public Use
  Company Number: AU-JNJFOC-20111200613

PATIENT
  Sex: Male
  Weight: 106 kg

DRUGS (11)
  1. STELARA [Suspect]
     Indication: PSORIASIS
     Route: 058
     Dates: start: 20110104, end: 20110104
  2. CARTIA XT [Concomitant]
  3. INDAPAMIDE [Concomitant]
  4. STELARA [Suspect]
     Route: 058
     Dates: start: 20110712, end: 20110712
  5. METFORMIN HCL [Concomitant]
  6. EXENATIDE [Concomitant]
  7. STELARA [Suspect]
     Route: 058
     Dates: start: 20111008, end: 20111008
  8. STELARA [Suspect]
     Route: 058
     Dates: start: 20110201, end: 20110201
  9. DIAMICRON [Concomitant]
  10. STELARA [Suspect]
     Route: 058
     Dates: start: 20110426, end: 20110426
  11. PERINDOPRIL/AMLODIPINE [Concomitant]

REACTIONS (1)
  - DYSPNOEA [None]
